FAERS Safety Report 7524695-9 (Version None)
Quarter: 2011Q2

REPORT INFORMATION
  Report Type: 
  Country: None (occurrence: None)
  Receive Date: 20110602
  Receipt Date: 20110602
  Transmission Date: 20111010
  Serious: No
  Sender: FDA-Public Use
  Company Number: None

PATIENT
  Sex: Female

DRUGS (1)
  1. ABATACEPT [Suspect]
     Indication: UVEITIS
     Dosage: 500 MG X7 IV
     Route: 042
     Dates: start: 20101027, end: 20110521

REACTIONS (1)
  - ANAPHYLACTIC REACTION [None]
